FAERS Safety Report 18101120 (Version 1)
Quarter: 2020Q3

REPORT INFORMATION
  Report Type: Spontaneous
  Country: ES (occurrence: ES)
  Receive Date: 20200801
  Receipt Date: 20200801
  Transmission Date: 20201103
  Serious: No
  Sender: FDA-Public Use
  Company Number: ES-LUPIN PHARMACEUTICALS INC.-2019-06800

PATIENT
  Age: 72 Year
  Sex: Male

DRUGS (1)
  1. LEVOFLOXACIN. [Suspect]
     Active Substance: LEVOFLOXACIN
     Indication: DEVICE RELATED INFECTION
     Dosage: UNK
     Route: 065

REACTIONS (1)
  - Skin hyperpigmentation [Recovered/Resolved]
